FAERS Safety Report 18702716 (Version 1)
Quarter: 2021Q1

REPORT INFORMATION
  Report Type: Spontaneous
  Country: US (occurrence: US)
  Receive Date: 20210105
  Receipt Date: 20210105
  Transmission Date: 20210419
  Serious: Yes (Hospitalization)
  Sender: FDA-Public Use
  Company Number: US-VERTEX PHARMACEUTICALS-2020-025600

PATIENT
  Sex: Female
  Weight: 19.09 kg

DRUGS (14)
  1. SENNA SPP. EXTRACT [Concomitant]
  2. VIBRAMYCIN [DOXYCYCLINE CALCIUM] [Concomitant]
     Dosage: 100 MG CAPSULE
  3. ALBUTEROL SULFATE. [Concomitant]
     Active Substance: ALBUTEROL SULFATE
  4. VITAMIN E [Concomitant]
     Active Substance: .ALPHA.-TOCOPHEROL
     Dosage: 100/0.25 ML DROPS
  5. PREVACID [Concomitant]
     Active Substance: LANSOPRAZOLE
     Dosage: 15 MG CAPSULE DR
  6. TOBRAMYCIN. [Concomitant]
     Active Substance: TOBRAMYCIN
     Dosage: 300 MG/5 ML AMPUL?NEB
  7. VITAMIN D [COLECALCIFEROL] [Concomitant]
     Active Substance: CHOLECALCIFEROL
     Dosage: 400 UNIT TABLET
  8. TYLENOL [Concomitant]
     Active Substance: ACETAMINOPHEN
     Dosage: 325 MG TABLET
  9. PULMOZYME [Concomitant]
     Active Substance: DORNASE ALFA
     Dosage: 1 MG/ML SOLUTION
  10. VITAMIN A [RETINOL] [Concomitant]
     Active Substance: RETINOL
     Dosage: 1000 UNIT CAPSULE
  11. SYMDEKO [Suspect]
     Active Substance: IVACAFTOR\TEZACAFTOR
     Indication: CYSTIC FIBROSIS
     Dosage: 1 WHITE TABLET IN THE MORNING AND 1 BLUE TABLET IN THE EVENING, BID
     Route: 048
  12. SALINE [BORIC ACID] [Concomitant]
     Dosage: MIST 0.65%
  13. CREON [Concomitant]
     Active Substance: PANCRELIPASE AMYLASE\PANCRELIPASE LIPASE\PANCRELIPASE PROTEASE
     Dosage: 12K?38K?60 CAPSULE DR
  14. ZYRTEC [Concomitant]
     Active Substance: CETIRIZINE HYDROCHLORIDE
     Dosage: 10 MG CAPSULE

REACTIONS (2)
  - Weight decreased [Recovered/Resolved]
  - Pulmonary function test decreased [Unknown]
